FAERS Safety Report 5886689-9 (Version None)
Quarter: 2008Q3

REPORT INFORMATION
  Report Type: 
  Country: None (occurrence: None)
  Receive Date: 20080917
  Receipt Date: 20080910
  Transmission Date: 20090109
  Serious: Yes (Hospitalization, Disabling)
  Sender: FDA-Public Use
  Company Number: PHHY2008FR21145

PATIENT

DRUGS (1)
  1. ZOMETA [Suspect]
     Indication: BRONCHIAL CARCINOMA
     Dosage: 4 MG, QMO
     Dates: start: 20050901

REACTIONS (6)
  - BONE DISORDER [None]
  - BONE LESION [None]
  - BONE PAIN [None]
  - MASTICATION DISORDER [None]
  - OSTEONECROSIS [None]
  - SEQUESTRECTOMY [None]
